FAERS Safety Report 10573005 (Version 1)
Quarter: 2014Q4

REPORT INFORMATION
  Report Type: Spontaneous
  Country: US (occurrence: None)
  Receive Date: 20141106
  Receipt Date: 20141106
  Transmission Date: 20150529
  Serious: Yes (Other)
  Sender: FDA-Public Use
  Company Number: 2014TASUS000526

PATIENT
  Age: 57 Year
  Sex: Female

DRUGS (8)
  1. MINERAL OIL EMULSION [Concomitant]
     Active Substance: MINERAL OIL EMULSION
  2. ALKA SELTZER [Concomitant]
     Active Substance: ANHYDROUS CITRIC ACID\ASPIRIN\SODIUM BICARBONATE
  3. MELATOIN [Concomitant]
  4. HETLIOZ [Suspect]
     Active Substance: TASIMELTEON
     Indication: CIRCADIAN RHYTHM SLEEP DISORDER
     Route: 048
     Dates: start: 20140816, end: 20141007
  5. VITAMINS [Concomitant]
     Active Substance: VITAMINS
  6. CLARITIN [Concomitant]
     Active Substance: LORATADINE
  7. MAGNESIUM OXIDE. [Concomitant]
     Active Substance: MAGNESIUM OXIDE
  8. LATANOPROST. [Concomitant]
     Active Substance: LATANOPROST

REACTIONS (3)
  - Gallbladder operation [None]
  - Urinary tract infection [None]
  - Hernia repair [None]

NARRATIVE: CASE EVENT DATE: 201409
